FAERS Safety Report 9394187 (Version 1)
Quarter: 2013Q3

REPORT INFORMATION
  Report Type: Report from Study
  Country: FR (occurrence: FR)
  Receive Date: 20130711
  Receipt Date: 20130711
  Transmission Date: 20140515
  Serious: Yes (Death, Hospitalization)
  Sender: FDA-Public Use
  Company Number: FR-ROCHE-1247196

PATIENT
  Age: 46 Year
  Sex: Male
  Weight: 73 kg

DRUGS (8)
  1. TRASTUZUMAB [Suspect]
     Indication: PANCREATIC CARCINOMA
     Dosage: LAST DOSE- 144 MG, PRIOR TO SAE- 31/OCT/2012
     Route: 042
     Dates: start: 20120906
  2. ERLOTINIB [Suspect]
     Indication: PANCREATIC CARCINOMA
     Dosage: LAST DOSE- 100 MG, PRIOR TO SAE- 06/NOV/2012
     Route: 048
     Dates: start: 20120906
  3. GEMCITABINE [Suspect]
     Indication: PANCREATIC CARCINOMA
     Dosage: LAST DOSE- 1850 MG, PRIOR TO SAE- 31/OCT/2012
     Route: 042
     Dates: start: 20120906
  4. PREVISCAN (FRANCE) [Concomitant]
     Indication: ATRIAL FIBRILLATION
     Route: 048
     Dates: start: 20121106
  5. CORDARONE [Concomitant]
     Indication: ATRIAL FIBRILLATION
     Route: 048
     Dates: start: 20121106
  6. DIAMICRON [Concomitant]
     Indication: DIABETES MELLITUS
     Route: 048
     Dates: start: 20121106
  7. CARDENSIEL [Concomitant]
     Indication: HYPERTENSION
     Route: 048
     Dates: start: 20121106
  8. LANTUS [Concomitant]
     Indication: DIABETES MELLITUS
     Route: 058

REACTIONS (1)
  - Cardiogenic shock [Fatal]
